FAERS Safety Report 24412536 (Version 1)
Quarter: 2024Q4

REPORT INFORMATION
  Report Type: Spontaneous
  Country: PT (occurrence: PT)
  Receive Date: 20241008
  Receipt Date: 20241008
  Transmission Date: 20250115
  Serious: Yes (Hospitalization, Other)
  Sender: MYLAN
  Company Number: PT-SUN PHARMACEUTICAL INDUSTRIES LTD-2023R1-398585

PATIENT
  Age: 45 Year
  Sex: Female

DRUGS (1)
  1. ALLOPURINOL [Suspect]
     Active Substance: ALLOPURINOL
     Indication: Hyperuricaemia
     Dosage: 300 MILLIGRAM, QD,(DAILY)
     Route: 065

REACTIONS (2)
  - SJS-TEN overlap [Recovering/Resolving]
  - Off label use [Unknown]
